FAERS Safety Report 10182503 (Version 2)
Quarter: 2014Q2

REPORT INFORMATION
  Report Type: Spontaneous
  Country: US (occurrence: None)
  Receive Date: 20140516
  Receipt Date: 20140624
  Transmission Date: 20141212
  Serious: Yes (Hospitalization, Other)
  Sender: FDA-Public Use
  Company Number: AUR-APL-2014-05475

PATIENT
  Age: 60 Year
  Sex: Female

DRUGS (14)
  1. ATENOLOL (ATENOLOL) [Suspect]
     Indication: BLOOD PRESSURE ABNORMAL
     Route: 048
  2. LISINOPRIL [Suspect]
     Indication: BLOOD PRESSURE ABNORMAL
     Route: 048
  3. NEXIUM (ESOMEPRAZOLE MAGNESIUM) [Suspect]
     Indication: GASTROOESOPHAGEAL REFLUX DISEASE
     Route: 048
  4. PRILOSEC (OMEPRAZOLE) [Suspect]
     Indication: GASTROOESOPHAGEAL REFLUX DISEASE
     Route: 048
  5. INSULIN (INSULIN) [Concomitant]
  6. VERAPAMIL (VERAPAMIL) [Concomitant]
  7. POTASSIUM (POTASSIUM) [Concomitant]
  8. METFORMIN (METFORMIN) [Concomitant]
  9. LASIX (FUROSEMIDE) [Concomitant]
  10. ASPIRIN (ACETYLSALICYLIC ACID) [Concomitant]
  11. PRAVASTATIN (PRAVASTATIN) [Concomitant]
  12. LORTAB (VICODIN) [Concomitant]
  13. COUMADINE (WARFARIN SODIUM) [Concomitant]
  14. OXYGEN (OXYGEN) [Concomitant]

REACTIONS (34)
  - Haematochezia [None]
  - Gastric haemorrhage [None]
  - Aphagia [None]
  - Asthenia [None]
  - Neoplasm malignant [None]
  - Body height decreased [None]
  - Aphonia [None]
  - Cerebrovascular accident [None]
  - Nausea [None]
  - Thrombosis [None]
  - Peripheral swelling [None]
  - Weight decreased [None]
  - Red blood cell count decreased [None]
  - White blood cell count decreased [None]
  - Small cell lung cancer [None]
  - Blood glucose decreased [None]
  - Vocal cord disorder [None]
  - Infection [None]
  - Choking [None]
  - Bone cancer [None]
  - Gastrooesophageal reflux disease [None]
  - Fatigue [None]
  - Laryngitis [None]
  - Throat irritation [None]
  - Vomiting [None]
  - Blood glucose fluctuation [None]
  - Dyspnoea [None]
  - Abdominal discomfort [None]
  - Discomfort [None]
  - Drug ineffective [None]
  - Off label use [None]
  - Extra dose administered [None]
  - Drug dose omission [None]
  - Decreased appetite [None]
